FAERS Safety Report 22185718 (Version 1)
Quarter: 2023Q2

REPORT INFORMATION
  Report Type: Spontaneous
  Country: US (occurrence: None)
  Receive Date: 20230406
  Receipt Date: 20230406
  Transmission Date: 20230721
  Serious: Yes (Hospitalization)
  Sender: FDA-Public Use
  Company Number: None

PATIENT
  Age: 63 Year
  Sex: Female

DRUGS (14)
  1. AMBRISENTAN [Suspect]
     Active Substance: AMBRISENTAN
     Indication: Pulmonary arterial hypertension
     Dosage: FREQUENCY : DAILY;?
     Route: 048
     Dates: start: 20140203
  2. ATORVASTATIN [Concomitant]
  3. DILTIAZEM [Concomitant]
  4. VITAMINS [Concomitant]
     Active Substance: VITAMINS
  5. FOLIC ACID [Concomitant]
     Active Substance: FOLIC ACID
  6. VITAMIN D3 [Concomitant]
     Active Substance: CHOLECALCIFEROL
  7. intranasal oxygen [Concomitant]
  8. CULTURELLE [Concomitant]
  9. sumatripan [Concomitant]
  10. FERROUS SULFATE [Concomitant]
     Active Substance: FERROUS SULFATE
  11. diclofenac top gel [Concomitant]
  12. SPIRONOLACTONE [Concomitant]
     Active Substance: SPIRONOLACTONE
  13. FUROSEMIDE [Concomitant]
     Active Substance: FUROSEMIDE
  14. EXCEDRIN [Concomitant]
     Active Substance: ACETAMINOPHEN\ASPIRIN\CAFFEINE

REACTIONS (2)
  - Pneumonia [None]
  - Supraventricular tachycardia [None]

NARRATIVE: CASE EVENT DATE: 20230316
